FAERS Safety Report 6724830-6 (Version None)
Quarter: 2010Q2

REPORT INFORMATION
  Report Type: 
  Country: None (occurrence: None)
  Receive Date: 20100513
  Receipt Date: 20100513
  Transmission Date: 20101027
  Serious: Yes (Other)
  Sender: FDA-Public Use
  Company Number: None

PATIENT
  Age: 57 Year
  Sex: Male
  Weight: 73 kg

DRUGS (2)
  1. FLUTICASONE PROPIONATE [Suspect]
     Indication: CHRONIC OBSTRUCTIVE PULMONARY DISEASE
     Dosage: 1 INHALATION TWICE DAILY OTHER
     Route: 050
     Dates: start: 20070809, end: 20100401
  2. KALETRA [Suspect]
     Indication: ACQUIRED IMMUNODEFICIENCY SYNDROME
     Dosage: 100 MG TWICE DAILY PO
     Route: 048
     Dates: start: 20060110, end: 20100401

REACTIONS (3)
  - CUSHING'S SYNDROME [None]
  - MULTIPLE FRACTURES [None]
  - OSTEOPOROSIS [None]
